FAERS Safety Report 13041690 (Version 1)
Quarter: 2016Q4

REPORT INFORMATION
  Report Type: Spontaneous
  Country: US (occurrence: US)
  Receive Date: 20161219
  Receipt Date: 20161219
  Transmission Date: 20170207
  Serious: No
  Sender: FDA-Public Use
  Company Number: US-ROCHE-1165650

PATIENT
  Age: 53 Year
  Sex: Male

DRUGS (4)
  1. NSAIDS NOS [Concomitant]
     Active Substance: UNSPECIFIED INGREDIENT
     Indication: ARTHRALGIA
     Route: 065
  2. ANALGESIC NOS [Concomitant]
     Active Substance: UNSPECIFIED INGREDIENT
     Indication: ARTHRALGIA
     Route: 065
  3. ZELBORAF [Suspect]
     Active Substance: VEMURAFENIB
     Indication: MALIGNANT MELANOMA
     Route: 065
     Dates: start: 20121025, end: 20121128
  4. ZELBORAF [Suspect]
     Active Substance: VEMURAFENIB
     Route: 065
     Dates: start: 20121128

REACTIONS (3)
  - Somnolence [Not Recovered/Not Resolved]
  - Arthralgia [Unknown]
  - Pyrexia [Recovered/Resolved]
